FAERS Safety Report 9342976 (Version 1)
Quarter: 2013Q2

REPORT INFORMATION
  Report Type: Spontaneous
  Country: US (occurrence: US)
  Receive Date: 20130611
  Receipt Date: 20130611
  Transmission Date: 20140414
  Serious: Yes (Other)
  Sender: FDA-Public Use
  Company Number: US-VERTEX PHARMACEUTICALS INC-2013-006846

PATIENT
  Age: 24 Year
  Sex: Female

DRUGS (3)
  1. INCIVEK [Suspect]
     Indication: HEPATITIS C
     Route: 067
  2. PEGASYS [Suspect]
     Route: 067
  3. RIBAVIRIN [Suspect]
     Route: 067

REACTIONS (2)
  - Abortion spontaneous [Unknown]
  - Exposure via body fluid [Unknown]
